FAERS Safety Report 12054402 (Version 1)
Quarter: 2016Q1

REPORT INFORMATION
  Report Type: Spontaneous
  Country: US (occurrence: US)
  Receive Date: 20160209
  Receipt Date: 20160209
  Transmission Date: 20160526
  Serious: No
  Sender: FDA-Public Use
  Company Number: US-BAYER-2016-024892

PATIENT
  Age: 60 Year
  Sex: Male
  Weight: 158.73 kg

DRUGS (2)
  1. CLARITIN [Suspect]
     Active Substance: LORATADINE
     Indication: RHINORRHOEA
     Dosage: 1 TABLESPOON, QD
     Route: 048
     Dates: start: 20160202
  2. CLARITIN [Suspect]
     Active Substance: LORATADINE
     Indication: RESPIRATORY TRACT CONGESTION

REACTIONS (3)
  - Dizziness [Not Recovered/Not Resolved]
  - Product use issue [None]
  - Dizziness [Recovered/Resolved]

NARRATIVE: CASE EVENT DATE: 201602
